FAERS Safety Report 5912138-8 (Version None)
Quarter: 2008Q4

REPORT INFORMATION
  Report Type: 
  Country: None (occurrence: None)
  Receive Date: 20081008
  Receipt Date: 20081006
  Transmission Date: 20090506
  Serious: Yes (Life-Threatening, Hospitalization)
  Sender: FDA-Public Use
  Company Number: US-RB-004787-08

PATIENT
  Age: 53 Year
  Sex: Male

DRUGS (1)
  1. SUBOXONE [Suspect]
     Dosage: DOSING INFORMATION UNKNOWN.
     Route: 060
     Dates: start: 20080201, end: 20080928

REACTIONS (5)
  - LUPUS-LIKE SYNDROME [None]
  - MYOCARDIAL INFARCTION [None]
  - PULMONARY EMBOLISM [None]
  - PYREXIA [None]
  - WEIGHT DECREASED [None]
